FAERS Safety Report 19314605 (Version 1)
Quarter: 2021Q2

REPORT INFORMATION
  Report Type: Report from Study
  Country: DK (occurrence: DK)
  Receive Date: 20210527
  Receipt Date: 20210527
  Transmission Date: 20210717
  Serious: Yes (Hospitalization)
  Sender: FDA-Public Use
  Company Number: DK-MYLANLABS-2021M1030785

PATIENT
  Age: 93 Year
  Sex: Female

DRUGS (2)
  1. FENTANYL. [Suspect]
     Active Substance: FENTANYL
     Indication: BACK PAIN
     Dosage: 25 AUG/HOUR [SIC]
     Route: 062
  2. MORPHINE [Suspect]
     Active Substance: MORPHINE
     Indication: BACK PAIN
     Dosage: 5 MILLIGRAM, BID
     Route: 065

REACTIONS (3)
  - Product prescribing error [Unknown]
  - Fall [Recovered/Resolved]
  - Accidental overdose [Recovered/Resolved]
